FAERS Safety Report 14827886 (Version 2)
Quarter: 2018Q2

REPORT INFORMATION
  Report Type: Spontaneous
  Country: PT (occurrence: PT)
  Receive Date: 20180430
  Receipt Date: 20180511
  Transmission Date: 20180711
  Serious: Yes (Death, Hospitalization)
  Sender: FDA-Public Use
  Company Number: PT-HORIZON-ACT-0136-2018

PATIENT
  Age: 67 Year
  Sex: Male

DRUGS (2)
  1. NIVOLUMAB [Concomitant]
     Active Substance: NIVOLUMAB
     Indication: T-CELL DEPLETION
     Dosage: SINGLE INTAKE OF 250 MG
  2. INTERFERON GAMMA NOS [Suspect]
     Active Substance: INTERFERON GAMMA
     Indication: T-CELL DEPLETION
     Dosage: 100 ?G 3X WEEK, 5 INTAKES

REACTIONS (3)
  - Respiratory acidosis [Fatal]
  - Pulmonary fibrosis [Fatal]
  - Off label use [Unknown]
